FAERS Safety Report 8277737-X (Version None)
Quarter: 2012Q2

REPORT INFORMATION
  Report Type: 
  Country: None (occurrence: None)
  Receive Date: 20120412
  Receipt Date: 20120409
  Transmission Date: 20120825
  Serious: Yes (Other)
  Sender: FDA-Public Use
  Company Number: US-PFIZER INC-2012064707

PATIENT
  Sex: Female

DRUGS (7)
  1. NEXIUM [Concomitant]
     Dosage: UNK
  2. PROVENTIL GENTLEHALER [Concomitant]
  3. ZESTRIL [Concomitant]
     Dosage: UNK
  4. ADVAIR DISKUS 100/50 [Concomitant]
     Dosage: UNK
  5. LYRICA [Suspect]
     Dosage: 200, 3X/DAY
     Route: 048
  6. CELEBREX [Concomitant]
     Dosage: UNK
  7. SPIRIVA [Concomitant]
     Dosage: UNK

REACTIONS (3)
  - RIB FRACTURE [None]
  - FALL [None]
  - MALAISE [None]
